FAERS Safety Report 15785620 (Version 2)
Quarter: 2019Q1

REPORT INFORMATION
  Report Type: Spontaneous
  Country: US (occurrence: US)
  Receive Date: 20190103
  Receipt Date: 20190107
  Transmission Date: 20190417
  Serious: Yes (Other)
  Sender: FDA-Public Use
  Company Number: US-TEVA-2018-US-993511

PATIENT
  Age: 76 Year
  Sex: Male

DRUGS (17)
  1. DIAZEPAM. [Suspect]
     Active Substance: DIAZEPAM
     Indication: APATHY
     Dosage: 20 MILLIGRAM DAILY;
     Route: 065
  2. DIAZEPAM. [Suspect]
     Active Substance: DIAZEPAM
     Indication: HYPERSOMNIA
  3. ASPIRIN. [Concomitant]
     Active Substance: ASPIRIN
     Route: 065
  4. COENZYME Q10 [Concomitant]
     Active Substance: UBIDECARENONE
     Route: 065
  5. SILYMARIN [Concomitant]
     Active Substance: DIETARY SUPPLEMENT\HERBALS\MILK THISTLE
     Route: 048
  6. UBIQUINOL [Concomitant]
     Active Substance: UBIQUINOL
     Dosage: AS DIRECTED
     Route: 065
  7. DIAZEPAM. [Suspect]
     Active Substance: DIAZEPAM
     Indication: ALCOHOL USE
  8. DIAZEPAM. [Suspect]
     Active Substance: DIAZEPAM
     Indication: AVERSION
  9. DIAZEPAM. [Suspect]
     Active Substance: DIAZEPAM
     Indication: WEIGHT INCREASED
  10. DIAZEPAM. [Suspect]
     Active Substance: DIAZEPAM
     Indication: DEPRESSION
  11. HYOSCYAMINE. [Suspect]
     Active Substance: HYOSCYAMINE
     Route: 065
  12. NITROSTAT [Concomitant]
     Active Substance: NITROGLYCERIN
     Route: 065
  13. VALERIAN [Concomitant]
     Active Substance: VALERIAN
     Dosage: AS DIRECTED
     Route: 065
  14. MULTIVITAMIN [Concomitant]
     Active Substance: VITAMINS
     Route: 065
  15. ACYCLOVIR. [Concomitant]
     Active Substance: ACYCLOVIR
     Route: 065
  16. DULOXETINE. [Concomitant]
     Active Substance: DULOXETINE
     Dosage: 60-90 MG
     Route: 065
  17. MELATONIN [Concomitant]
     Active Substance: MELATONIN
     Route: 065

REACTIONS (2)
  - Dementia [Recovering/Resolving]
  - Toxicity to various agents [Recovering/Resolving]
